FAERS Safety Report 5380869-7 (Version None)
Quarter: 2007Q3

REPORT INFORMATION
  Report Type: 
  Country: None (occurrence: None)
  Receive Date: 20070706
  Receipt Date: 20070704
  Transmission Date: 20080115
  Serious: Yes (Hospitalization)
  Sender: FDA-Public Use
  Company Number: ES-JNJFOC-20070700950

PATIENT
  Age: 38 Year
  Sex: Male

DRUGS (6)
  1. RISPERDAL CONSTA [Suspect]
     Indication: SCHIZOPHRENIA, PARANOID TYPE
     Route: 030
  2. ZYPREXA [Interacting]
     Indication: SCHIZOPHRENIA, PARANOID TYPE
     Route: 048
  3. SEDOTIME [Interacting]
     Indication: SCHIZOPHRENIA, PARANOID TYPE
     Route: 048
  4. KALETRA [Interacting]
     Indication: DRUG USE FOR UNKNOWN INDICATION
     Route: 048
  5. TRANXILIUM [Interacting]
     Indication: SCHIZOPHRENIA, PARANOID TYPE
     Route: 048
  6. ANTABUSE [Concomitant]
     Indication: ALCOHOLISM
     Route: 048

REACTIONS (5)
  - CONFUSIONAL STATE [None]
  - DRUG INTERACTION [None]
  - OVERDOSE [None]
  - PANCREATITIS [None]
  - SOMNOLENCE [None]
